FAERS Safety Report 8084079-4 (Version None)
Quarter: 2012Q1

REPORT INFORMATION
  Report Type: 
  Country: None (occurrence: None)
  Receive Date: 20120128
  Receipt Date: 20110128
  Transmission Date: 20120608
  Serious: No
  Sender: FDA-Public Use
  Company Number: US-ABBOTT-11P-163-0701554-00

PATIENT
  Sex: Female
  Weight: 104.42 kg

DRUGS (19)
  1. LASIX [Concomitant]
     Indication: PRODUCT USED FOR UNKNOWN INDICATION
  2. PRAVASTATIN SODIUM [Concomitant]
     Indication: BLOOD CHOLESTEROL INCREASED
  3. PLAVIX [Concomitant]
     Indication: STENT PLACEMENT
  4. TRAMADOL HCL [Concomitant]
     Indication: ARTHRALGIA
  5. ENALAPRIL MALEATE [Concomitant]
     Indication: HYPERTENSION
  6. CARBIDOPA AND LEVODOPA [Concomitant]
     Indication: PAIN IN EXTREMITY
     Dosage: 25/100: 1 IN 1DAYS
  7. PLAVIX [Concomitant]
     Indication: PAIN IN EXTREMITY
  8. ALBUTEROL [Concomitant]
     Indication: ASTHMA
     Dosage: EVERY 4 HOURS
  9. HUMIRA [Suspect]
     Indication: RHEUMATOID ARTHRITIS
     Dates: start: 20110101
  10. VITAMIN D WITH CALCIUM [Concomitant]
     Indication: VITAMIN SUPPLEMENTATION
  11. NEURONTIN [Concomitant]
     Indication: PARAESTHESIA
  12. ZETIA [Concomitant]
     Indication: BLOOD CHOLESTEROL INCREASED
  13. ADVAIR DISKUS 100/50 [Concomitant]
     Indication: ASTHMA
     Dosage: 250/50; 2 IN 1DAY
  14. SPIRONOLACTONE W/ HYDROCHLOROTHIAZIDE [Concomitant]
     Indication: HYPERTENSION
     Dosage: 25/25; 1 IN 1DAY
  15. HYOSCYAMINE SULFATE [Concomitant]
     Indication: COLITIS ISCHAEMIC
     Dosage: EVERY 4 HOURS AS NEEDED FOR PAIN
  16. HYOSCYAMINE SULFATE [Concomitant]
     Indication: PAIN
  17. CARBIDOPA AND LEVODOPA [Concomitant]
     Indication: STENT PLACEMENT
  18. NEURONTIN [Concomitant]
     Indication: BACK PAIN
  19. POTASSIUM [Concomitant]
     Indication: MINERAL SUPPLEMENTATION

REACTIONS (5)
  - COUGH [None]
  - INCREASED UPPER AIRWAY SECRETION [None]
  - NASOPHARYNGITIS [None]
  - FATIGUE [None]
  - SOMNOLENCE [None]
